FAERS Safety Report 18952004 (Version 1)
Quarter: 2021Q1

REPORT INFORMATION
  Report Type: Spontaneous
  Country: US (occurrence: US)
  Receive Date: 20210301
  Receipt Date: 20210301
  Transmission Date: 20210420
  Serious: No
  Sender: FDA-Public Use
  Company Number: US-JNJFOC-20210238932

PATIENT
  Age: 77 Year
  Sex: Male
  Weight: 68.1 kg

DRUGS (1)
  1. ERLEADA [Suspect]
     Active Substance: APALUTAMIDE
     Indication: PROSTATE CANCER METASTATIC
     Route: 048

REACTIONS (4)
  - Abnormal dreams [Unknown]
  - Prostatic specific antigen increased [Unknown]
  - Incorrect dose administered [Unknown]
  - Nightmare [Unknown]
